FAERS Safety Report 10478999 (Version 2)
Quarter: 2014Q4

REPORT INFORMATION
  Report Type: Spontaneous
  Country: US (occurrence: US)
  Receive Date: 20140926
  Receipt Date: 20141008
  Transmission Date: 20150528
  Serious: Yes (Hospitalization)
  Sender: FDA-Public Use
  Company Number: US-BAXTER-2014BAX057190

PATIENT
  Age: 66 Year
  Sex: Female

DRUGS (1)
  1. DIANEAL LOW CALCIUM PERITONEAL DIALYSIS SOLUTION WITH DEXTROSE [Suspect]
     Active Substance: CALCIUM CHLORIDE\DEXTROSE\MAGNESIUM CHLORIDE\SODIUM CHLORIDE\SODIUM LACTATE
     Indication: PERITONEAL DIALYSIS
     Route: 033

REACTIONS (9)
  - Transient ischaemic attack [Recovering/Resolving]
  - Nephropathy toxic [Recovering/Resolving]
  - Dehydration [Recovering/Resolving]
  - Syncope [Recovering/Resolving]
  - Catheter site haemorrhage [Recovering/Resolving]
  - Disorientation [Recovering/Resolving]
  - Staphylococcal infection [Recovering/Resolving]
  - Thrombosis [Recovered/Resolved]
  - Cardiac procedure complication [Recovering/Resolving]

NARRATIVE: CASE EVENT DATE: 20140701
